FAERS Safety Report 6684366-8 (Version None)
Quarter: 2010Q2

REPORT INFORMATION
  Report Type: 
  Country: None (occurrence: None)
  Receive Date: 20100416
  Receipt Date: 20100406
  Transmission Date: 20101027
  Serious: Yes (Hospitalization)
  Sender: FDA-Public Use
  Company Number: FR-ABBOTT-10P-056-0636813-00

PATIENT
  Sex: Female

DRUGS (4)
  1. KALETRA [Suspect]
     Indication: HIV INFECTION
  2. COMBIVIR [Suspect]
     Indication: HIV INFECTION
  3. LAMICTAL [Concomitant]
     Indication: EPILEPSY
  4. LAMICTAL [Concomitant]
     Indication: CEREBRAL TOXOPLASMOSIS

REACTIONS (4)
  - CEREBRAL TOXOPLASMOSIS [None]
  - DRUG EXPOSURE DURING PREGNANCY [None]
  - PREMATURE BABY [None]
  - TOCOLYSIS [None]
